FAERS Safety Report 7562402-4 (Version None)
Quarter: 2011Q2

REPORT INFORMATION
  Report Type: 
  Country: None (occurrence: None)
  Receive Date: 20110614
  Receipt Date: 20110531
  Transmission Date: 20111010
  Serious: Yes (Other)
  Sender: FDA-Public Use
  Company Number: 2011MA006580

PATIENT
  Age: 29 Year
  Sex: Female

DRUGS (1)
  1. BUPROPION HYDROCHLORIDE [Suspect]
     Indication: MAJOR DEPRESSION
     Dosage: 100 MG;OD;

REACTIONS (4)
  - ARRHYTHMIA [None]
  - MATERNAL DRUGS AFFECTING FOETUS [None]
  - SUPRAVENTRICULAR EXTRASYSTOLES [None]
  - FOETAL DISORDER [None]
